FAERS Safety Report 13456023 (Version 1)
Quarter: 2017Q2

REPORT INFORMATION
  Report Type: Spontaneous
  Country: US (occurrence: US)
  Receive Date: 20170419
  Receipt Date: 20170419
  Transmission Date: 20170830
  Serious: Yes (Other)
  Sender: FDA-Public Use
  Company Number: US-LUNDBECK-DKLU2029519

PATIENT
  Sex: Male

DRUGS (1)
  1. NORTHERA [Suspect]
     Active Substance: DROXIDOPA
     Indication: PRODUCT USED FOR UNKNOWN INDICATION
     Dosage: SCHEDULE C
     Route: 065

REACTIONS (16)
  - Pollakiuria [Unknown]
  - Micturition urgency [Unknown]
  - Memory impairment [Unknown]
  - Hypotension [Unknown]
  - Drug dose omission [Unknown]
  - Fall [Unknown]
  - Gait disturbance [Unknown]
  - Presyncope [Unknown]
  - Loss of consciousness [Unknown]
  - Confusional state [Unknown]
  - Hallucination [Unknown]
  - Nocturia [Unknown]
  - Sleep apnoea syndrome [Unknown]
  - Syncope [Unknown]
  - Cognitive disorder [Unknown]
  - Asthenia [Unknown]
